FAERS Safety Report 8955920 (Version 2)
Quarter: 2013Q1

REPORT INFORMATION
  Report Type: Report from Study
  Country: US (occurrence: US)
  Receive Date: 20121210
  Receipt Date: 20130122
  Transmission Date: 20140127
  Serious: Yes (Hospitalization)
  Sender: FDA-Public Use
  Company Number: US-JNJFOC-20121203176

PATIENT
  Age: 14 Year
  Sex: Female
  Weight: 33.13 kg

DRUGS (9)
  1. REMICADE [Suspect]
     Indication: CROHN^S DISEASE
     Route: 042
     Dates: start: 20091030, end: 20100527
  2. REMICADE [Suspect]
     Indication: INFLAMMATORY BOWEL DISEASE
     Route: 042
     Dates: start: 20091030, end: 20100527
  3. 5-ASA [Concomitant]
     Route: 048
  4. METHOTREXATE [Concomitant]
  5. FLUOXETINE [Concomitant]
  6. FOLIC ACID [Concomitant]
  7. PREDNISONE [Concomitant]
  8. VANCOMYCIN [Concomitant]
  9. PANTOPRAZOLE [Concomitant]

REACTIONS (1)
  - Crohn^s disease [Recovered/Resolved]
